FAERS Safety Report 24980687 (Version 2)
Quarter: 2025Q2

REPORT INFORMATION
  Report Type: Report from Study
  Country: US (occurrence: US)
  Receive Date: 20250218
  Receipt Date: 20250625
  Transmission Date: 20250716
  Serious: Yes (Hospitalization, Other)
  Sender: SUNOVION
  Company Number: US-SMPA-2025SPA001515

PATIENT

DRUGS (1)
  1. ORGOVYX [Suspect]
     Active Substance: RELUGOLIX
     Indication: Prostate cancer
     Dosage: 120 MG, QD
     Route: 048
     Dates: start: 20241003

REACTIONS (6)
  - Pelvic fracture [Unknown]
  - Upper limb fracture [Unknown]
  - Prostatic specific antigen abnormal [Unknown]
  - Back pain [Unknown]
  - Drug ineffective [Unknown]
  - Incorrect dose administered [Unknown]
